FAERS Safety Report 7238464-0 (Version None)
Quarter: 2011Q1

REPORT INFORMATION
  Report Type: 
  Country: None (occurrence: None)
  Receive Date: 20110121
  Receipt Date: 20110118
  Transmission Date: 20110831
  Serious: Yes (Other)
  Sender: FDA-Public Use
  Company Number: CHPA2011US01230

PATIENT
  Age: 24 Month
  Sex: Female
  Weight: 14.512 kg

DRUGS (1)
  1. TRIAMINIC FEVER REDUCER PAIN RELIEVER [Suspect]
     Indication: PYREXIA
     Dosage: 5 ML, ONCE/SINGLE
     Route: 048
     Dates: start: 20110115, end: 20110115

REACTIONS (6)
  - DRUG INEFFECTIVE [None]
  - LOSS OF CONSCIOUSNESS [None]
  - EYE MOVEMENT DISORDER [None]
  - CONVULSION [None]
  - CONDITION AGGRAVATED [None]
  - PYREXIA [None]
